FAERS Safety Report 22320184 (Version 1)
Quarter: 2023Q2

REPORT INFORMATION
  Report Type: Spontaneous
  Country: US (occurrence: US)
  Receive Date: 20230515
  Receipt Date: 20230515
  Transmission Date: 20230721
  Serious: Yes (Hospitalization)
  Sender: FDA-Public Use
  Company Number: US-MYLANLABS-2023M1049399

PATIENT
  Age: 22 Year
  Sex: Female

DRUGS (7)
  1. ACETAMINOPHEN [Suspect]
     Active Substance: ACETAMINOPHEN
     Indication: Pain
     Dosage: UNK
     Route: 065
  2. GABAPENTIN [Suspect]
     Active Substance: GABAPENTIN
     Indication: Pain
     Dosage: UNK
     Route: 065
  3. DIAZEPAM [Suspect]
     Active Substance: DIAZEPAM
     Indication: Pain
     Dosage: UNK
     Route: 065
  4. FENTANYL [Suspect]
     Active Substance: FENTANYL
     Indication: Pain
     Dosage: UNK
     Route: 065
  5. LORAZEPAM [Suspect]
     Active Substance: LORAZEPAM
     Indication: Pain
     Dosage: UNK
     Route: 065
  6. CYCLOBENZAPRINE [Suspect]
     Active Substance: CYCLOBENZAPRINE
     Indication: Pain
     Dosage: UNK
     Route: 065
  7. MORPHINE [Suspect]
     Active Substance: MORPHINE
     Indication: Pain
     Dosage: UNK,PATIENT CONTROLLED ANALGESIA
     Route: 065

REACTIONS (3)
  - Drug ineffective [Unknown]
  - Drug ineffective for unapproved indication [Unknown]
  - Off label use [Unknown]
